FAERS Safety Report 11691192 (Version 1)
Quarter: 2015Q4

REPORT INFORMATION
  Report Type: Spontaneous
  Country: DK (occurrence: DK)
  Receive Date: 20151102
  Receipt Date: 20151102
  Transmission Date: 20160304
  Serious: Yes (Hospitalization)
  Sender: FDA-Public Use
  Company Number: DK-ROCHE-1649900

PATIENT
  Age: 67 Year
  Sex: Female

DRUGS (9)
  1. SELEXID (AMDINOCILLIN/PIVMECILLINAM) [Concomitant]
     Indication: URINARY TRACT INFECTION
     Route: 065
     Dates: start: 20150903, end: 20150909
  2. KETOGAN [Concomitant]
     Active Substance: KETOBEMIDONE HYDROCHLORIDE
     Indication: PAIN
     Dosage: AS NEEDED
     Route: 065
     Dates: start: 201506
  3. PINEX (DENMARK) [Concomitant]
     Indication: PAIN
     Route: 065
  4. AMPICILLIN [Concomitant]
     Active Substance: AMPICILLIN
     Indication: KIDNEY INFECTION
     Dosage: INDICATION: AGAINST INFLAMMATION OF THE RENAL PELVIS.
     Route: 042
     Dates: start: 20150901, end: 20150903
  5. METHYLPHENIDATE. [Concomitant]
     Active Substance: METHYLPHENIDATE
     Indication: RESTLESSNESS
     Route: 065
     Dates: start: 20150902
  6. PANTOPRAZOL [Concomitant]
     Active Substance: PANTOPRAZOLE SODIUM
     Indication: GASTROOESOPHAGEAL REFLUX DISEASE
     Dosage: AS NEEDED
     Route: 065
     Dates: start: 20150630
  7. TEMESTA (DENMARK) [Concomitant]
     Indication: ANXIETY
     Dosage: AS NEEDED
     Route: 065
     Dates: start: 201505
  8. KADCYLA [Suspect]
     Active Substance: ADO-TRASTUZUMAB EMTANSINE
     Indication: BREAST CANCER
     Route: 042
     Dates: start: 20141222
  9. PREDNISOLON [Concomitant]
     Active Substance: PREDNISOLONE
     Indication: ADRENOCORTICAL STEROID THERAPY
     Route: 065
     Dates: start: 201309

REACTIONS (3)
  - Candida sepsis [Not Recovered/Not Resolved]
  - Pyrexia [Unknown]
  - Confusional state [Unknown]

NARRATIVE: CASE EVENT DATE: 20150911
